FAERS Safety Report 8017568-9 (Version None)
Quarter: 2011Q4

REPORT INFORMATION
  Report Type: 
  Country: None (occurrence: None)
  Receive Date: 20111229
  Receipt Date: 20111229
  Transmission Date: 20120403
  Serious: Yes (Hospitalization)
  Sender: FDA-Public Use
  Company Number: None

PATIENT
  Age: 92 Year
  Sex: Female

DRUGS (19)
  1. MIRALAX [Concomitant]
  2. REFRESH [Concomitant]
  3. LIDODERM [Concomitant]
  4. NORCO [Concomitant]
  5. CARBAMIDE PEROXIDE [Concomitant]
  6. M.V.I. [Concomitant]
  7. ARICEPT [Concomitant]
  8. PLAVIX [Suspect]
     Indication: ARTERIAL OCCLUSIVE DISEASE
     Dosage: 75MG DAILY PO
     Route: 048
  9. ASPIRIN [Suspect]
     Indication: ATRIAL FIBRILLATION
     Dosage: 81MG DAILY PO CHRONIC
     Route: 048
  10. LYRICA [Concomitant]
  11. NAMENDA [Concomitant]
  12. CALCIUM + VIT D [Concomitant]
  13. METAMUCIL-2 [Concomitant]
  14. TEARGEN [Concomitant]
  15. LOSARTAN POTASSIUM [Concomitant]
  16. MICARDIS [Concomitant]
  17. FOSAMAX [Suspect]
  18. TOPROL-XL [Concomitant]
  19. ACETAMINOPHEN [Concomitant]

REACTIONS (3)
  - GASTRIC ULCER [None]
  - UPPER GASTROINTESTINAL HAEMORRHAGE [None]
  - ANAEMIA [None]
